FAERS Safety Report 7957739-0 (Version None)
Quarter: 2011Q4

REPORT INFORMATION
  Report Type: 
  Country: None (occurrence: None)
  Receive Date: 20111205
  Receipt Date: 20111130
  Transmission Date: 20120403
  Serious: Yes (Hospitalization, Other)
  Sender: FDA-Public Use
  Company Number: PHHY2011LB105101

PATIENT
  Age: 81 Year
  Sex: Male
  Weight: 75 kg

DRUGS (5)
  1. AMIODARONE HCL [Concomitant]
  2. INDACATEROL [Suspect]
     Dosage: 150 UG, UNK
     Dates: start: 20111128
  3. INDACATEROL [Suspect]
     Indication: CHRONIC OBSTRUCTIVE PULMONARY DISEASE
     Dosage: 150 UG, UNK
     Dates: start: 20111120, end: 20111124
  4. TARKA [Concomitant]
     Indication: HYPERTENSION
     Route: 048
  5. SPIRIVA [Concomitant]
     Indication: CHRONIC OBSTRUCTIVE PULMONARY DISEASE

REACTIONS (3)
  - ATRIAL FIBRILLATION [None]
  - NODULE [None]
  - LUNG NEOPLASM MALIGNANT [None]
